FAERS Safety Report 6298124-X (Version None)
Quarter: 2009Q3

REPORT INFORMATION
  Report Type: 
  Country: None (occurrence: None)
  Receive Date: 20090805
  Receipt Date: 20090730
  Transmission Date: 20100115
  Serious: Yes (Other)
  Sender: FDA-Public Use
  Company Number: PHHY2009JP27238

PATIENT
  Sex: Male

DRUGS (11)
  1. DIOVAN [Suspect]
     Indication: HYPERTENSION
     Dosage: 80 MG, QD
     Route: 048
     Dates: start: 20081006, end: 20090629
  2. CLARUTE [Suspect]
     Indication: HYPERTENSION
     Dosage: 100 MG, QD
     Route: 048
     Dates: start: 20081006
  3. GLYCYOL [Concomitant]
     Indication: CHRONIC HEPATITIS
     Dosage: 25 MG, TID
     Route: 048
     Dates: start: 20090122, end: 20090721
  4. TOWARAT [Concomitant]
     Indication: HYPERTENSION
     Dosage: 20 MG, UNK
     Route: 048
     Dates: start: 20090630
  5. URDENACIN [Concomitant]
     Indication: CHRONIC HEPATITIS
     Dosage: 300 MG, UNK
     Route: 048
     Dates: start: 20050308
  6. URDENACIN [Concomitant]
     Dosage: 50 MG, TID
     Route: 048
     Dates: start: 20080301
  7. PROHEPARUM [Concomitant]
     Indication: CHRONIC HEPATITIS
     Dosage: 6 DF, UNK
     Route: 048
     Dates: start: 20080310
  8. PROHEPARUM [Concomitant]
     Dosage: 3 DF, UNK
     Route: 048
  9. HERBESSER ^DELTA^ [Concomitant]
     Indication: HYPERTENSION
     Dosage: 100 MG DAILY
     Route: 048
     Dates: start: 20081001, end: 20090610
  10. GLYCYRON [Concomitant]
     Indication: CHRONIC HEPATITIS
     Dosage: 3 DF, UNK
     Route: 048
  11. URSO 250 [Concomitant]
     Indication: CHRONIC HEPATITIS
     Dosage: 3 DF, UNK
     Route: 048

REACTIONS (4)
  - HAEMOGLOBIN DECREASED [None]
  - HYPOKALAEMIA [None]
  - PLATELET COUNT DECREASED [None]
  - WHITE BLOOD CELL COUNT DECREASED [None]
